FAERS Safety Report 13702937 (Version 1)
Quarter: 2017Q2

REPORT INFORMATION
  Report Type: Spontaneous
  Country: US (occurrence: US)
  Receive Date: 20170629
  Receipt Date: 20170629
  Transmission Date: 20170830
  Serious: Yes (Hospitalization)
  Sender: FDA-Public Use
  Company Number: US-FRESENIUS KABI-FK201705549

PATIENT
  Age: 76 Year
  Sex: Female

DRUGS (6)
  1. FLUOROURACIL (MANUFACTURER UNKNOWN) [Suspect]
     Active Substance: FLUOROURACIL
     Indication: ACUTE MYELOID LEUKAEMIA
     Route: 065
  2. BEVACIZUMAB [Suspect]
     Active Substance: BEVACIZUMAB
     Indication: COLON CANCER METASTATIC
  3. FOLINIC ACID [Concomitant]
     Active Substance: LEUCOVORIN
     Indication: ACUTE MYELOID LEUKAEMIA
     Route: 065
  4. FLUOROURACIL (MANUFACTURER UNKNOWN) [Suspect]
     Active Substance: FLUOROURACIL
     Indication: COLON CANCER METASTATIC
  5. BEVACIZUMAB [Suspect]
     Active Substance: BEVACIZUMAB
     Indication: ACUTE MYELOID LEUKAEMIA
     Route: 065
  6. FOLINIC ACID [Concomitant]
     Active Substance: LEUCOVORIN
     Indication: COLON CANCER METASTATIC

REACTIONS (2)
  - Colitis [Recovering/Resolving]
  - Tongue discolouration [Recovering/Resolving]
